FAERS Safety Report 8281812-3 (Version None)
Quarter: 2012Q2

REPORT INFORMATION
  Report Type: 
  Country: None (occurrence: None)
  Receive Date: 20120413
  Receipt Date: 20120402
  Transmission Date: 20120825
  Serious: Yes (Hospitalization)
  Sender: FDA-Public Use
  Company Number: US-JNJFOC-20120307110

PATIENT
  Sex: Male
  Weight: 51.26 kg

DRUGS (18)
  1. TYLENOL (CAPLET) [Concomitant]
     Indication: PREMEDICATION
     Route: 048
  2. TETRAHYDROZOLINE [Concomitant]
     Dosage: AS NEEDED
     Route: 047
  3. SPIRIVA [Concomitant]
     Route: 065
  4. TEMAZEPAM [Concomitant]
     Route: 048
  5. CALCIUM CARBONATE-VITAMIN D [Concomitant]
     Route: 048
  6. ALBUTEROL [Concomitant]
     Route: 065
  7. SINGULAIR [Concomitant]
     Route: 048
  8. ADVAIR DISKUS 100/50 [Concomitant]
     Route: 048
  9. MULTI-VITAMINS [Concomitant]
     Route: 048
  10. NASONEX [Concomitant]
     Route: 045
  11. PREDNISONE TAB [Concomitant]
     Route: 048
  12. FLUOXETINE HYDROCHLORIDE [Concomitant]
     Route: 048
  13. PROAIR HFA [Concomitant]
     Dosage: 1 PUFF AS NEEDED
     Route: 065
     Dates: start: 20120117
  14. METHOTREXATE [Concomitant]
     Route: 048
     Dates: start: 20120209
  15. BENADRYL [Concomitant]
     Indication: PREMEDICATION
     Route: 048
  16. OMEPRAZOLE [Concomitant]
     Route: 048
  17. REMICADE [Suspect]
     Indication: RHEUMATOID ARTHRITIS
     Dosage: HAD RECEIVED 3 INFUSIONS
     Route: 042
     Dates: start: 20111110, end: 20120206
  18. TRAMADOL HCL [Concomitant]
     Indication: PAIN
     Route: 048

REACTIONS (1)
  - HISTOPLASMOSIS [None]
